FAERS Safety Report 9826891 (Version 1)
Quarter: 2014Q1

REPORT INFORMATION
  Report Type: Spontaneous
  Country: US (occurrence: US)
  Receive Date: 20140117
  Receipt Date: 20140117
  Transmission Date: 20141002
  Serious: No
  Sender: FDA-Public Use
  Company Number: US-GLAXOSMITHKLINE-A1012057A

PATIENT
  Age: 54 Year
  Sex: Male

DRUGS (4)
  1. PROMACTA [Suspect]
     Indication: IMMUNE THROMBOCYTOPENIC PURPURA
     Dosage: 225MG PER DAY
     Route: 048
     Dates: start: 20120417
  2. MORPHINE SULFATE [Concomitant]
  3. BUPROPION [Concomitant]
  4. CARVEDILOL [Concomitant]

REACTIONS (3)
  - Overdose [Recovered/Resolved]
  - No adverse event [Unknown]
  - Drug administration error [Recovered/Resolved]
